FAERS Safety Report 9370893 (Version 1)
Quarter: 2013Q2

REPORT INFORMATION
  Report Type: Spontaneous
  Country: FR (occurrence: FR)
  Receive Date: 20130627
  Receipt Date: 20130627
  Transmission Date: 20140414
  Serious: Yes (Life-Threatening)
  Sender: FDA-Public Use
  Company Number: FR-BRISTOL-MYERS SQUIBB COMPANY-19021161

PATIENT
  Age: 69 Year
  Sex: Female

DRUGS (9)
  1. BYETTA [Suspect]
     Dosage: RECENT DOSE-AUG12
     Dates: start: 201003
  2. XELEVIA [Suspect]
     Dosage: FORMULATION-XELEVIA FILM-COATED TAB?RECENT DOSE-JAN12
     Route: 048
     Dates: start: 2011
  3. VICTOZA [Suspect]
     Dosage: LAST DOSE-JAN13?FORMULATION-VICTOZA 6MG/ML,SOL FOR INJ IN PRE-FILLED PEN
     Dates: start: 201208
  4. LEVEMIR [Concomitant]
  5. INEXIUM [Concomitant]
  6. ATORVASTATIN [Concomitant]
  7. ZANIDIP [Concomitant]
  8. COTAREG [Concomitant]
     Dosage: FORMULATION-COTAREG 160/25
  9. STAGID [Concomitant]

REACTIONS (1)
  - Pancreatic carcinoma metastatic [Not Recovered/Not Resolved]
